FAERS Safety Report 7588521-4 (Version None)
Quarter: 2011Q3

REPORT INFORMATION
  Report Type: 
  Country: None (occurrence: None)
  Receive Date: 20110705
  Receipt Date: 20110630
  Transmission Date: 20111222
  Serious: Yes (Other)
  Sender: FDA-Public Use
  Company Number: SI-PFIZER INC-2011121944

PATIENT
  Age: 68 Year
  Sex: Female
  Weight: 65 kg

DRUGS (13)
  1. METHYLPREDNISOLONE [Suspect]
     Dosage: 4 MG, 1X/DAY
  2. ADALIMUMAB [Suspect]
     Dosage: UNK
     Dates: end: 20110314
  3. DIOVAN HCT [Concomitant]
     Dosage: 80 MG, 1X/DAY
     Route: 048
  4. CALCIUM CARBONATE [Concomitant]
     Dosage: 1 G, 1X/DAY
  5. BERODUAL [Concomitant]
     Dosage: 2 UNK, AS NEEDED
  6. ENBREL [Suspect]
     Indication: RHEUMATOID ARTHRITIS
     Dosage: 50 MG, WEEKLY
     Route: 058
     Dates: start: 20080917, end: 20101202
  7. METHOTREXATE [Suspect]
     Indication: RHEUMATOID ARTHRITIS
     Dosage: 5 MG, WEEKLY
     Dates: end: 20100929
  8. EUTHYROX [Concomitant]
     Dosage: 100 UG, 1X/DAY
     Route: 048
  9. ENBREL [Suspect]
     Dosage: UNK
     Dates: start: 20101224, end: 20110113
  10. PLIVIT D3 [Concomitant]
     Dosage: 2800 IU, WEEKLY
     Dates: start: 20100101
  11. FOLACIN [Concomitant]
     Dosage: 10 MG, WEEKLY
     Route: 048
  12. ALPHA D3 [Concomitant]
     Dosage: 1 UG, 1X/DAY
     Route: 048
     Dates: end: 20091201
  13. BONIVA [Concomitant]
     Dosage: 150 MG, MONTHLY
     Route: 048

REACTIONS (3)
  - ANTINUCLEAR ANTIBODY POSITIVE [None]
  - LYMPHOCYTOSIS [None]
  - NEUTROPENIA [None]
